FAERS Safety Report 26174116 (Version 1)
Quarter: 2025Q4

REPORT INFORMATION
  Report Type: Spontaneous
  Country: US (occurrence: None)
  Receive Date: 20251217
  Receipt Date: 20251217
  Transmission Date: 20260118
  Serious: Yes (Hospitalization)
  Sender: FDA-CTU
  Company Number: None

PATIENT
  Sex: Female

DRUGS (1)
  1. VONVENDI [Suspect]
     Active Substance: VON WILLEBRAND FACTOR (RECOMBINANT)
     Indication: Von Willebrand^s disease
     Dosage: 3000 IU INTERNATIONAL UNIT(S) DAILY INTRAVENOUS
     Route: 042
     Dates: start: 20250304

REACTIONS (3)
  - Epistaxis [None]
  - Fall [None]
  - Head injury [None]
